FAERS Safety Report 4513959-9 (Version None)
Quarter: 2004Q4

REPORT INFORMATION
  Report Type: 
  Country: None (occurrence: None)
  Receive Date: 20041130
  Receipt Date: 20041011
  Transmission Date: 20050328
  Serious: No
  Sender: FDA-Public Use
  Company Number: US-GLAXOSMITHKLINE-A0529331A

PATIENT
  Sex: Male

DRUGS (10)
  1. WELLBUTRIN XL [Suspect]
     Indication: ILL-DEFINED DISORDER
     Dosage: 400MG PER DAY
     Route: 048
     Dates: start: 20040817
  2. ADDERALL 20 [Concomitant]
  3. AMBIEN [Concomitant]
  4. BUSPIRONE [Concomitant]
  5. CLARINEX [Concomitant]
  6. LITHIUM CARBONATE [Concomitant]
  7. NEXIUM [Concomitant]
  8. PRAVACHOL [Concomitant]
  9. TARKA [Concomitant]
  10. DIOVAN [Concomitant]

REACTIONS (4)
  - DYSGEUSIA [None]
  - NAUSEA [None]
  - UNEXPECTED THERAPEUTIC DRUG EFFECT [None]
  - WEIGHT DECREASED [None]
